FAERS Safety Report 4897477-4 (Version None)
Quarter: 2006Q1

REPORT INFORMATION
  Report Type: 
  Country: None (occurrence: None)
  Receive Date: 20060130
  Receipt Date: 20060130
  Transmission Date: 20060701
  Serious: Yes (Other)
  Sender: FDA-Public Use
  Company Number: None

PATIENT
  Age: 58 Year
  Sex: Female
  Weight: 63.5036 kg

DRUGS (1)
  1. BUSPIRONE HCL [Suspect]
     Indication: ANXIETY
     Dosage: 1 PILL 2/ DAY PO
     Route: 048
     Dates: start: 20060120, end: 20060122

REACTIONS (18)
  - ABDOMINAL PAIN UPPER [None]
  - AGITATION [None]
  - AMNESIA [None]
  - BLOOD PRESSURE SYSTOLIC INCREASED [None]
  - BODY TEMPERATURE DECREASED [None]
  - CHILLS [None]
  - DIARRHOEA [None]
  - DISTURBANCE IN ATTENTION [None]
  - HOT FLUSH [None]
  - INSOMNIA [None]
  - MUSCLE SPASMS [None]
  - NAUSEA [None]
  - POLLAKIURIA [None]
  - PSYCHOMOTOR HYPERACTIVITY [None]
  - RENAL PAIN [None]
  - RESTLESSNESS [None]
  - THINKING ABNORMAL [None]
  - VISION BLURRED [None]
